FAERS Safety Report 4559778-9 (Version None)
Quarter: 2005Q1

REPORT INFORMATION
  Report Type: 
  Country: None (occurrence: None)
  Receive Date: 20050107
  Receipt Date: 20041201
  Transmission Date: 20050727
  Serious: Yes (Life-Threatening)
  Sender: FDA-Public Use
  Company Number: 240952

PATIENT
  Age: 57 Year
  Sex: Female
  Weight: 59 kg

DRUGS (9)
  1. NOVOLOG [Suspect]
     Indication: DIABETES MELLITUS INSULIN-DEPENDENT
     Dosage: 15 - 20 IU QD, BASAL RATE, SUBCUTAN.-PUMP
     Route: 058
     Dates: start: 20040601
  2. MINIMED PARADIGM INSULIN PUMP [Concomitant]
  3. ARIMIDEX ^ASTRAZENECA^ (ANASTROZOLE) [Concomitant]
  4. SYNTHROID [Concomitant]
  5. ASPIRIN [Concomitant]
  6. WELLBUTRIN [Concomitant]
  7. EFFEXOR XR [Concomitant]
  8. CLONOPIN (CLONAZEPAM) [Concomitant]
  9. CALCIUM     /N/A/(CALCIUM) [Concomitant]

REACTIONS (1)
  - HYPOGLYCAEMIC COMA [None]
